FAERS Safety Report 4867513-X (Version None)
Quarter: 2005Q4

REPORT INFORMATION
  Report Type: 
  Country: None (occurrence: None)
  Receive Date: 20051222
  Receipt Date: 20051215
  Transmission Date: 20060501
  Serious: No
  Sender: FDA-Public Use
  Company Number: 33423

PATIENT

DRUGS (1)
  1. NEVANAC [Suspect]
     Indication: PROPHYLAXIS
     Dosage: 1 GTT ONCE OPHT
     Route: 047

REACTIONS (2)
  - EYE DISORDER [None]
  - PUNCTATE KERATITIS [None]
